FAERS Safety Report 17415330 (Version 1)
Quarter: 2020Q1

REPORT INFORMATION
  Report Type: Spontaneous
  Country: ES (occurrence: ES)
  Receive Date: 20200213
  Receipt Date: 20200213
  Transmission Date: 20200409
  Serious: Yes (Other)
  Sender: FDA-Public Use
  Company Number: ES-BRACCO-2020ES00224

PATIENT
  Age: 72 Year
  Sex: Male

DRUGS (1)
  1. PROHANCE [Suspect]
     Active Substance: GADOTERIDOL
     Indication: MAGNETIC RESONANCE IMAGING
     Dosage: 15 ML, SINGLE, AT SPEED OF 2.5 ML/SEC
     Route: 042
     Dates: start: 20200107, end: 20200107

REACTIONS (7)
  - Urticaria [Recovered/Resolved]
  - Hypotension [Recovered/Resolved]
  - Tongue injury [Unknown]
  - Lip injury [Unknown]
  - Sneezing [Unknown]
  - Nasal congestion [Unknown]
  - Syncope [Recovered/Resolved]

NARRATIVE: CASE EVENT DATE: 20200107
